FAERS Safety Report 12996441 (Version 1)
Quarter: 2016Q4

REPORT INFORMATION
  Report Type: Spontaneous
  Country: US (occurrence: US)
  Receive Date: 20161204
  Receipt Date: 20161204
  Transmission Date: 20170207
  Serious: No
  Sender: FDA-Public Use
  Company Number: US-ASTRAZENECA-2016SF21342

PATIENT
  Age: 863 Month
  Sex: Female
  Weight: 87.1 kg

DRUGS (6)
  1. LOSARTAN. [Concomitant]
     Active Substance: LOSARTAN
     Indication: BLOOD PRESSURE ABNORMAL
     Dates: start: 201608
  2. GLIMEPIRIDE. [Concomitant]
     Active Substance: GLIMEPIRIDE
     Dates: start: 201610
  3. BYDUREON [Suspect]
     Active Substance: EXENATIDE
     Route: 065
     Dates: start: 201610
  4. METFORMIN [Concomitant]
     Active Substance: METFORMIN HYDROCHLORIDE
     Dates: start: 2006
  5. BYDUREON [Suspect]
     Active Substance: EXENATIDE
     Route: 065
     Dates: start: 201605, end: 201608
  6. AMILODIPINE [Concomitant]
     Indication: BLOOD PRESSURE ABNORMAL
     Dates: start: 2006

REACTIONS (4)
  - Injection site nodule [Unknown]
  - Nausea [Unknown]
  - Dyspepsia [Unknown]
  - Rash [Unknown]

NARRATIVE: CASE EVENT DATE: 201605
